FAERS Safety Report 6841351-0 (Version None)
Quarter: 2010Q3

REPORT INFORMATION
  Report Type: 
  Country: None (occurrence: None)
  Receive Date: 20100714
  Receipt Date: 20070702
  Transmission Date: 20110219
  Serious: No
  Sender: FDA-Public Use
  Company Number: US-PFIZER INC-2007055663

PATIENT
  Sex: Female

DRUGS (10)
  1. CHANTIX [Suspect]
     Indication: SMOKING CESSATION THERAPY
     Route: 048
     Dates: start: 20070608, end: 20070619
  2. LAMISIL [Concomitant]
     Dates: start: 20070608
  3. HYDROCHLOROTHIAZIDE [Concomitant]
  4. GLIPIZIDE [Concomitant]
  5. VALSARTAN [Concomitant]
  6. SIMVASTATIN [Concomitant]
  7. METFORMIN HCL [Concomitant]
  8. ZETIA [Concomitant]
  9. PREVACID [Concomitant]
  10. ADVAIR DISKUS 100/50 [Concomitant]

REACTIONS (2)
  - DYSGEUSIA [None]
  - EATING DISORDER [None]
